FAERS Safety Report 5839757-1 (Version None)
Quarter: 2008Q3

REPORT INFORMATION
  Report Type: 
  Country: None (occurrence: None)
  Receive Date: 20080811
  Receipt Date: 20080805
  Transmission Date: 20090109
  Serious: Yes (Death, Other)
  Sender: FDA-Public Use
  Company Number: JP-BRISTOL-MYERS SQUIBB COMPANY-14278725

PATIENT
  Age: 61 Year
  Sex: Female

DRUGS (3)
  1. TAXOL [Suspect]
     Indication: OVARIAN CANCER
     Dosage: ALSO GIVEN ON 19JUN07-UNK
     Route: 041
     Dates: start: 20070821
  2. PARAPLATIN [Suspect]
     Indication: OVARIAN CANCER
     Dosage: ALSO TAKEN ON 19-JUN-2007.
     Route: 041
     Dates: start: 20070821
  3. AVASTIN [Suspect]
     Indication: OVARIAN CANCER
     Dosage: ALSO GIVEN ON 19JUN07-UNK
     Route: 041
     Dates: start: 20070821

REACTIONS (1)
  - GASTROINTESTINAL PERFORATION [None]
